FAERS Safety Report 23777498 (Version 3)
Quarter: 2024Q2

REPORT INFORMATION
  Report Type: Report from Study
  Country: CA (occurrence: CA)
  Receive Date: 20240424
  Receipt Date: 20240529
  Transmission Date: 20240716
  Serious: Yes (Other)
  Sender: FDA-Public Use
  Company Number: CA-BEH-2024167474

PATIENT
  Age: 66 Year
  Sex: Male
  Weight: 121.54 kg

DRUGS (23)
  1. HIZENTRA [Suspect]
     Active Substance: HUMAN IMMUNOGLOBULIN G
     Indication: Chronic inflammatory demyelinating polyradiculoneuropathy
     Dosage: 23 GRAM, BIW
     Route: 058
     Dates: start: 20210324
  2. HIZENTRA [Suspect]
     Active Substance: HUMAN IMMUNOGLOBULIN G
     Dosage: UNK
     Route: 065
  3. HIZENTRA [Suspect]
     Active Substance: HUMAN IMMUNOGLOBULIN G
     Dosage: UNK
     Route: 065
  4. HIZENTRA [Suspect]
     Active Substance: HUMAN IMMUNOGLOBULIN G
     Dosage: UNK
     Route: 065
  5. HIZENTRA [Suspect]
     Active Substance: HUMAN IMMUNOGLOBULIN G
     Dosage: UNK
     Route: 065
  6. HIZENTRA [Suspect]
     Active Substance: HUMAN IMMUNOGLOBULIN G
     Dosage: UNK
     Route: 065
  7. HIZENTRA [Suspect]
     Active Substance: HUMAN IMMUNOGLOBULIN G
     Dosage: 22 GRAM, TOT
     Route: 065
     Dates: start: 20240122, end: 20240122
  8. HIZENTRA [Suspect]
     Active Substance: HUMAN IMMUNOGLOBULIN G
     Dosage: 23 GRAM, BIW
     Route: 065
     Dates: start: 20210324
  9. HIZENTRA [Suspect]
     Active Substance: HUMAN IMMUNOGLOBULIN G
     Dosage: 24 GRAM, TOT
     Route: 065
     Dates: start: 20240202
  10. HIZENTRA [Suspect]
     Active Substance: HUMAN IMMUNOGLOBULIN G
     Dosage: 22 GRAM, TOT
     Route: 065
     Dates: start: 20240210
  11. HIZENTRA [Suspect]
     Active Substance: HUMAN IMMUNOGLOBULIN G
     Dosage: 23 GRAM, BIW
     Route: 065
     Dates: start: 20210324
  12. HIZENTRA [Suspect]
     Active Substance: HUMAN IMMUNOGLOBULIN G
     Dosage: 24 GRAM
     Route: 065
     Dates: start: 20240217
  13. HIZENTRA [Suspect]
     Active Substance: HUMAN IMMUNOGLOBULIN G
     Dosage: UNK
     Route: 065
     Dates: start: 20240219
  14. HIZENTRA [Suspect]
     Active Substance: HUMAN IMMUNOGLOBULIN G
     Dosage: UNK
     Route: 065
     Dates: start: 20240324
  15. HIZENTRA [Suspect]
     Active Substance: HUMAN IMMUNOGLOBULIN G
     Dosage: UNK
     Route: 065
     Dates: start: 20240328
  16. HIZENTRA [Suspect]
     Active Substance: HUMAN IMMUNOGLOBULIN G
     Dosage: UNK
     Route: 065
     Dates: start: 20240405
  17. HIZENTRA [Suspect]
     Active Substance: HUMAN IMMUNOGLOBULIN G
     Dosage: 46 G, QW
     Route: 058
     Dates: start: 20210324
  18. HIZENTRA [Suspect]
     Active Substance: HUMAN IMMUNOGLOBULIN G
     Dosage: UNK
     Route: 065
  19. HIZENTRA [Suspect]
     Active Substance: HUMAN IMMUNOGLOBULIN G
     Dosage: UNK
     Route: 065
  20. HIZENTRA [Suspect]
     Active Substance: HUMAN IMMUNOGLOBULIN G
     Dosage: UNK
     Route: 065
     Dates: start: 20240422
  21. OZEMPIC [Concomitant]
     Active Substance: SEMAGLUTIDE
     Dosage: 0.25 MILLIGRAM, QW
  22. LASIX [Concomitant]
     Active Substance: FUROSEMIDE
  23. GABAPENTIN [Concomitant]
     Active Substance: GABAPENTIN

REACTIONS (48)
  - Pain in extremity [Not Recovered/Not Resolved]
  - Chronic inflammatory demyelinating polyradiculoneuropathy [Unknown]
  - Constipation [Unknown]
  - Paraesthesia [Unknown]
  - Fatigue [Unknown]
  - COVID-19 [Recovering/Resolving]
  - Feeling abnormal [Recovering/Resolving]
  - Tremor [Recovering/Resolving]
  - Nasopharyngitis [Recovering/Resolving]
  - Hyperhidrosis [Recovering/Resolving]
  - Oropharyngeal pain [Recovering/Resolving]
  - Headache [Recovering/Resolving]
  - Dizziness [Recovering/Resolving]
  - Decreased appetite [Recovering/Resolving]
  - Rhinorrhoea [Recovering/Resolving]
  - Cough [Recovering/Resolving]
  - Pyrexia [Recovering/Resolving]
  - Therapy interrupted [Unknown]
  - Weight decreased [Unknown]
  - Product dose omission issue [Unknown]
  - Product dose omission issue [Unknown]
  - Somnolence [Unknown]
  - Insomnia [Unknown]
  - Insomnia [Unknown]
  - Muscle twitching [Unknown]
  - Poor quality sleep [Unknown]
  - Anger [Unknown]
  - Agitation [Unknown]
  - Hypertension [Recovered/Resolved]
  - Sleep disorder due to general medical condition, insomnia type [Unknown]
  - Fatigue [Unknown]
  - Pain in extremity [Recovered/Resolved]
  - Insomnia [Unknown]
  - Furuncle [Unknown]
  - Pain in extremity [Unknown]
  - Skin infection [Unknown]
  - Pain in extremity [Unknown]
  - Swelling [Unknown]
  - Erythema [Unknown]
  - Therapy interrupted [Unknown]
  - Angina pectoris [Unknown]
  - Localised infection [Unknown]
  - Pain [Unknown]
  - Blister [Unknown]
  - Wound [Unknown]
  - Pain in extremity [Unknown]
  - Swelling [Unknown]
  - Erythema [Unknown]

NARRATIVE: CASE EVENT DATE: 20240101
